FAERS Safety Report 6223704-7 (Version None)
Quarter: 2009Q2

REPORT INFORMATION
  Report Type: 
  Country: None (occurrence: None)
  Receive Date: 20090611
  Receipt Date: 20090316
  Transmission Date: 20091009
  Serious: No
  Sender: FDA-Public Use
  Company Number: US-ABBOTT-08P-163-0486448-00

PATIENT
  Sex: Female

DRUGS (19)
  1. HUMIRA [Suspect]
     Indication: RHEUMATOID ARTHRITIS
     Route: 058
     Dates: start: 20071201
  2. FLUCONAZOLE [Concomitant]
     Indication: CANDIDIASIS
     Route: 048
  3. PREDNISONE [Concomitant]
     Indication: DRUG USE FOR UNKNOWN INDICATION
  4. COUMADIN [Concomitant]
     Indication: DRUG USE FOR UNKNOWN INDICATION
     Dosage: 2.5MG
     Route: 048
  5. IMIPRAMINE [Concomitant]
     Indication: MUSCLE SPASMS
  6. IMIPRAMINE [Concomitant]
     Indication: FIBROMYALGIA
  7. IMIPRAMINE [Concomitant]
     Indication: DEPRESSION
  8. SYNTHROID [Concomitant]
     Indication: AUTOIMMUNE THYROIDITIS
  9. DIOVAN [Concomitant]
     Indication: DRUG USE FOR UNKNOWN INDICATION
  10. ACIPHEX [Concomitant]
     Indication: GASTROOESOPHAGEAL REFLUX DISEASE
  11. BUSPAR [Concomitant]
     Indication: DEPRESSION
  12. TOPAMAX [Concomitant]
     Indication: MIGRAINE
  13. TOPAMAX [Concomitant]
     Indication: NEURALGIA
  14. LIPITOR [Concomitant]
     Indication: DRUG USE FOR UNKNOWN INDICATION
  15. METHADONE HCL [Concomitant]
     Indication: PAIN MANAGEMENT
  16. PERCOCET [Concomitant]
     Indication: PAIN MANAGEMENT
  17. SOMA [Concomitant]
     Indication: DRUG USE FOR UNKNOWN INDICATION
  18. PROVIGIL [Concomitant]
     Indication: DRUG USE FOR UNKNOWN INDICATION
  19. IMITREX [Concomitant]
     Indication: MIGRAINE

REACTIONS (3)
  - MOBILITY DECREASED [None]
  - OSTEOARTHRITIS [None]
  - PAIN IN EXTREMITY [None]
